FAERS Safety Report 5120022-5 (Version None)
Quarter: 2006Q3

REPORT INFORMATION
  Report Type: 
  Country: None (occurrence: None)
  Receive Date: 20060929
  Receipt Date: 20060915
  Transmission Date: 20061208
  Serious: Yes (Other)
  Sender: FDA-Public Use
  Company Number: 2006BI012946

PATIENT
  Age: 62 Year
  Sex: Male
  Weight: 60 kg

DRUGS (4)
  1. ZEVALIN [Suspect]
     Indication: B-CELL LYMPHOMA
     Dosage: 10 MBQ; 1X; IV
     Route: 042
     Dates: start: 20060427, end: 20060427
  2. ZEVALIN [Suspect]
     Indication: B-CELL LYMPHOMA
     Dosage: 10 MBQ; 1X; IV
     Route: 042
     Dates: start: 20060427, end: 20060427
  3. LEVOTHYROXINE SODIUM [Concomitant]
  4. ORACILLIN [Concomitant]

REACTIONS (3)
  - APLASIA [None]
  - NEUTROPENIA [None]
  - THROMBOCYTOPENIA [None]
